FAERS Safety Report 13938461 (Version 1)
Quarter: 2017Q3

REPORT INFORMATION
  Report Type: Spontaneous
  Country: US (occurrence: US)
  Receive Date: 20170905
  Receipt Date: 20170905
  Transmission Date: 20171127
  Serious: Yes (Disabling)
  Sender: FDA-Public Use
  Company Number: None

PATIENT
  Age: 89 Year
  Sex: Female
  Weight: 54.2 kg

DRUGS (5)
  1. MEMANTINE. [Concomitant]
     Active Substance: MEMANTINE
  2. METOPROLOL TART [Concomitant]
     Active Substance: METOPROLOL TARTRATE
  3. DILTIAZEM. [Concomitant]
     Active Substance: DILTIAZEM
  4. DONEPEZIL. [Concomitant]
     Active Substance: DONEPEZIL
  5. WARFARIN [Suspect]
     Active Substance: WARFARIN
     Indication: ATRIAL FIBRILLATION
     Route: 048
     Dates: end: 20170614

REACTIONS (1)
  - Subdural haematoma [None]

NARRATIVE: CASE EVENT DATE: 20170614
